FAERS Safety Report 24274305 (Version 1)
Quarter: 2024Q3

REPORT INFORMATION
  Report Type: Spontaneous
  Country: GB (occurrence: GB)
  Receive Date: 20240902
  Receipt Date: 20240902
  Transmission Date: 20241017
  Serious: Yes (Other)
  Sender: BIOVITRUM
  Company Number: GB-BIOVITRUM-2024-GB-011424

PATIENT

DRUGS (1)
  1. DOPTELET [Suspect]
     Active Substance: AVATROMBOPAG MALEATE
     Indication: Immune thrombocytopenia

REACTIONS (6)
  - Drug ineffective [Unknown]
  - Platelet count decreased [Unknown]
  - Drug resistance [Unknown]
  - Brain fog [Unknown]
  - Amnesia [Unknown]
  - Weight decreased [Unknown]
